FAERS Safety Report 10855803 (Version 1)
Quarter: 2015Q1

REPORT INFORMATION
  Report Type: Spontaneous
  Country: US (occurrence: None)
  Receive Date: 20150218
  Receipt Date: 20150218
  Transmission Date: 20150721
  Serious: Yes (Other)
  Sender: FDA-Public Use
  Company Number: None

PATIENT
  Age: 35 Year
  Sex: Female
  Weight: 64.41 kg

DRUGS (3)
  1. ROBAXIN [Suspect]
     Active Substance: METHOCARBAMOL
     Indication: PAIN
     Dosage: 1 PILL
     Route: 048
     Dates: start: 20140801, end: 20141115
  2. ROBAXIN [Suspect]
     Active Substance: METHOCARBAMOL
     Indication: WEIGHT DECREASED
     Dosage: 1 PILL
     Route: 048
     Dates: start: 20140801, end: 20141115
  3. ROBAXIN [Suspect]
     Active Substance: METHOCARBAMOL
     Indication: MUSCLE SPASMS
     Dosage: 1 PILL
     Route: 048
     Dates: start: 20140801, end: 20141115

REACTIONS (4)
  - Coordination abnormal [None]
  - Contusion [None]
  - Lethargy [None]
  - Asthenia [None]

NARRATIVE: CASE EVENT DATE: 20140901
